FAERS Safety Report 8737854 (Version 2)
Quarter: 2012Q4

REPORT INFORMATION
  Report Type: 
  Country: US (occurrence: US)
  Receive Date: 20120823
  Receipt Date: 20121008
  Transmission Date: 20130627
  Serious: Yes (Other)
  Sender: FDA-Public Use
  Company Number: US-MERCK-1208USA003616

PATIENT

DRUGS (4)
  1. FOSAMAX [Suspect]
     Dosage: UNK
     Route: 048
     Dates: start: 2001, end: 2010
  2. BONIVA [Suspect]
     Dosage: UNK
     Dates: start: 2001, end: 2010
  3. IBANDRONATE SODIUM [Suspect]
     Dosage: UNK
     Dates: start: 2001, end: 2010
  4. FOSAMAX [Suspect]
     Dosage: UNK
     Route: 048
     Dates: start: 2001, end: 2010

REACTIONS (2)
  - Femur fracture [Unknown]
  - Jaw disorder [Unknown]
